FAERS Safety Report 9939934 (Version 1)
Quarter: 2014Q1

REPORT INFORMATION
  Report Type: Report from Study
  Country: US (occurrence: US)
  Receive Date: 20140303
  Receipt Date: 20140303
  Transmission Date: 20141002
  Serious: No
  Sender: FDA-Public Use
  Company Number: US-ABBVIE-13P-163-1033197-00

PATIENT
  Age: 49 Year
  Sex: Male

DRUGS (3)
  1. HUMIRA [Suspect]
     Indication: CROHN^S DISEASE
     Route: 058
     Dates: start: 201210
  2. HUMIRA [Suspect]
     Route: 058
     Dates: start: 201209, end: 201209
  3. HUMIRA [Suspect]
     Route: 058
     Dates: start: 201209, end: 201209

REACTIONS (3)
  - Muscle rigidity [Not Recovered/Not Resolved]
  - Bone pain [Not Recovered/Not Resolved]
  - Mood altered [Not Recovered/Not Resolved]
